FAERS Safety Report 11242321 (Version 1)
Quarter: 2015Q3

REPORT INFORMATION
  Report Type: Spontaneous
  Country: FI (occurrence: FI)
  Receive Date: 20150707
  Receipt Date: 20150707
  Transmission Date: 20151125
  Serious: Yes (Hospitalization)
  Sender: FDA-Public Use
  Company Number: FI-ROCHE-1603302

PATIENT
  Age: 1 Year
  Sex: Male

DRUGS (4)
  1. PARACETAMOL FRESENIUS [Concomitant]
     Indication: PREMEDICATION
     Dosage: SINGLE DOSE.
     Route: 042
     Dates: start: 20150624, end: 20150624
  2. OXYGEN SUPPLEMENT [Concomitant]
  3. HISTEC [Concomitant]
     Indication: PREMEDICATION
     Dosage: SINGLE DOSE.
     Route: 048
     Dates: start: 20150624, end: 20150624
  4. MABTHERA [Suspect]
     Active Substance: RITUXIMAB
     Indication: TRANSPLANT REJECTION
     Dosage: CONCENTRATED FOR SOLUTION FOR INFUSION.?SINGLE DOSE.
     Route: 042
     Dates: start: 20150624, end: 20150624

REACTIONS (3)
  - Blood pressure decreased [Recovered/Resolved]
  - Loss of consciousness [Recovered/Resolved]
  - Depressed level of consciousness [Recovered/Resolved]

NARRATIVE: CASE EVENT DATE: 20150624
